FAERS Safety Report 10023750 (Version 3)
Quarter: 2014Q3

REPORT INFORMATION
  Report Type: Spontaneous
  Country: US (occurrence: US)
  Receive Date: 20140320
  Receipt Date: 20140915
  Transmission Date: 20150326
  Serious: Yes (Death, Hospitalization, Other)
  Sender: FDA-Public Use
  Company Number: US-BAYER-2014-039869

PATIENT
  Age: 31 Year
  Sex: Female
  Weight: 88.89 kg

DRUGS (7)
  1. VANIQA [Concomitant]
     Active Substance: EFLORNITHINE HYDROCHLORIDE
     Indication: HYPERTRICHOSIS
  2. GIANVI [Suspect]
     Active Substance: DROSPIRENONE\ETHINYL ESTRADIOL
     Indication: CONTRACEPTION
     Dosage: UNK
     Route: 048
     Dates: start: 20120402, end: 20120428
  3. YAZ [Suspect]
     Active Substance: DROSPIRENONE\ETHINYL ESTRADIOL
     Indication: POLYCYSTIC OVARIES
  4. IBUPROFEN [IBUPROFEN] [Concomitant]
     Active Substance: IBUPROFEN
     Dosage: 600 MG, UNK
  5. DIFFERIN [Concomitant]
     Active Substance: ADAPALENE
     Indication: ACNE
     Dosage: UNK
     Dates: start: 2009, end: 20120428
  6. GIANVI [Suspect]
     Active Substance: DROSPIRENONE\ETHINYL ESTRADIOL
     Indication: POLYCYSTIC OVARIES
     Dosage: UNK
     Dates: start: 200906
  7. YAZ [Suspect]
     Active Substance: DROSPIRENONE\ETHINYL ESTRADIOL
     Indication: CONTRACEPTION
     Dosage: UNK
     Dates: start: 200906

REACTIONS (16)
  - Moaning [None]
  - Pain [None]
  - Pain in extremity [None]
  - Cardiac arrest [Fatal]
  - Vascular injury [Fatal]
  - Emotional distress [None]
  - Fear [None]
  - Vital functions abnormal [Fatal]
  - Pulmonary embolism [Fatal]
  - Respiratory distress [Fatal]
  - Deep vein thrombosis [None]
  - Dyspnoea [Fatal]
  - Cardiac failure [Fatal]
  - Haemorrhage [Fatal]
  - Anxiety [None]
  - Cardiac ventricular thrombosis [None]

NARRATIVE: CASE EVENT DATE: 20120425
